FAERS Safety Report 25397023 (Version 1)
Quarter: 2025Q2

REPORT INFORMATION
  Report Type: Spontaneous
  Country: US (occurrence: None)
  Receive Date: 20250603
  Receipt Date: 20250603
  Transmission Date: 20250717
  Serious: Yes (Death)
  Sender: FDA-CTU
  Company Number: None

PATIENT
  Age: 77 Year
  Sex: Male
  Weight: 81 kg

DRUGS (1)
  1. FERUMOXYTOL [Suspect]
     Active Substance: FERUMOXYTOL
     Indication: Iron deficiency anaemia
     Dosage: FREQUENCY : WEEKLY;?
     Route: 042
     Dates: start: 20250123, end: 20250123

REACTIONS (7)
  - Anaphylactic reaction [None]
  - Infusion related reaction [None]
  - Grunting [None]
  - Cough [None]
  - Somatic dysfunction [None]
  - Cardio-respiratory arrest [None]
  - Therapy interrupted [None]

NARRATIVE: CASE EVENT DATE: 20250123
